FAERS Safety Report 21167648 (Version 1)
Quarter: 2022Q3

REPORT INFORMATION
  Report Type: Spontaneous
  Country: US (occurrence: None)
  Receive Date: 20220803
  Receipt Date: 20220803
  Transmission Date: 20221027
  Serious: Yes (Other)
  Sender: FDA-Public Use
  Company Number: None

PATIENT
  Age: 42 Year
  Sex: Female
  Weight: 67.5 kg

DRUGS (1)
  1. DEXTROAMPHETAMINE [Suspect]
     Active Substance: DEXTROAMPHETAMINE
     Indication: Hypersomnia
     Dosage: FREQUENCY : 3 TIMES A DAY;?
     Route: 048
     Dates: start: 20220723, end: 20220803

REACTIONS (12)
  - Product substitution issue [None]
  - Hypersomnia [None]
  - Disturbance in attention [None]
  - Fatigue [None]
  - Stress [None]
  - Anxiety [None]
  - Depression [None]
  - Abnormal behaviour [None]
  - Crying [None]
  - Asthenia [None]
  - Withdrawal syndrome [None]
  - Drug ineffective [None]

NARRATIVE: CASE EVENT DATE: 20220727
